FAERS Safety Report 16762220 (Version 2)
Quarter: 2025Q3

REPORT INFORMATION
  Report Type: Spontaneous
  Country: EU (occurrence: EU)
  Receive Date: 20190831
  Receipt Date: 20250819
  Transmission Date: 20251020
  Serious: Yes (Other)
  Sender: AUROBINDO
  Company Number: EU-AUROBINDO-AUR-APL-2019-056975

PATIENT
  Sex: Female
  Weight: 3.01 kg

DRUGS (2)
  1. CLOZAPINE [Suspect]
     Active Substance: CLOZAPINE
     Indication: Schizophrenia
     Route: 064
  2. METOPROLOL [Concomitant]
     Active Substance: METOPROLOL
     Indication: Sinus tachycardia
     Route: 064

REACTIONS (6)
  - Gastrooesophageal reflux disease [Recovered/Resolved]
  - Foetal heart rate decreased [Recovered/Resolved]
  - Milk allergy [Not Recovered/Not Resolved]
  - Foetal exposure during pregnancy [Recovered/Resolved]
  - Foetal hypokinesia [Recovered/Resolved]
  - Drug withdrawal syndrome neonatal [Recovered/Resolved]
